FAERS Safety Report 7194174-X (Version None)
Quarter: 2010Q4

REPORT INFORMATION
  Report Type: 
  Country: None (occurrence: None)
  Receive Date: 20101223
  Receipt Date: 20101019
  Transmission Date: 20110411
  Serious: No
  Sender: FDA-Public Use
  Company Number: US-AMGEN-KDL432787

PATIENT

DRUGS (2)
  1. ENBREL [Suspect]
     Indication: ANKYLOSING SPONDYLITIS
     Dosage: 50 MG, QWK
     Route: 058
     Dates: start: 20050301
  2. ENBREL [Suspect]
     Dates: start: 20050301

REACTIONS (6)
  - ANKYLOSING SPONDYLITIS [None]
  - CONSTIPATION [None]
  - DRY MOUTH [None]
  - FALL [None]
  - PRODUCTIVE COUGH [None]
  - RIB FRACTURE [None]
